FAERS Safety Report 7767711-1 (Version None)
Quarter: 2011Q3

REPORT INFORMATION
  Report Type: 
  Country: None (occurrence: None)
  Receive Date: 20110922
  Receipt Date: 20110916
  Transmission Date: 20111222
  Serious: Yes (Hospitalization)
  Sender: FDA-Public Use
  Company Number: FR-PFIZER INC-2011221363

PATIENT
  Age: 84 Year
  Sex: Female

DRUGS (8)
  1. DRIPTANE [Concomitant]
     Dosage: 5 MG, 3X/DAY
  2. DURAGESIC-100 [Suspect]
     Dosage: 50 UG, 1 TIME EVERY 3 DAYS
     Route: 062
  3. IRBESARTAN AND HYDROCHLOROTHIAZIDE [Concomitant]
     Dosage: 1 DF, 1X/DAY
  4. MORPHINE SULFATE [Concomitant]
     Dosage: 5 MG AS NEEDED
     Route: 048
  5. ARIMIDEX [Concomitant]
     Dosage: 1 DF, 1X/DAY
  6. LYRICA [Suspect]
     Dosage: 50 MG, 2X/DAY, MORNING AND EVENING
     Route: 048
  7. TENSTATEN [Concomitant]
     Dosage: 1 DF, 1X/DAY IN THE EVENING
  8. GLUCIDORAL [Concomitant]
     Dosage: 1 DF, 1X/DAY

REACTIONS (5)
  - DIZZINESS [None]
  - FALL [None]
  - FRACTURE [None]
  - NAUSEA [None]
  - VOMITING [None]
